FAERS Safety Report 9125794 (Version 1)
Quarter: 2013Q1

REPORT INFORMATION
  Report Type: Spontaneous
  Country: BR (occurrence: BR)
  Receive Date: 20130121
  Receipt Date: 20130121
  Transmission Date: 20140127
  Serious: Yes (Other)
  Sender: FDA-Public Use
  Company Number: BR-009507513-1301BRA008354

PATIENT
  Sex: Male

DRUGS (3)
  1. PEGINTERFERON ALFA-2B [Suspect]
     Dosage: UNK
     Route: 058
     Dates: start: 20120509
  2. RIBAVIRIN [Suspect]
     Dosage: UNK
     Route: 048
     Dates: start: 20120509
  3. TELAPREVIR [Concomitant]
     Dosage: UNK
     Route: 048
     Dates: start: 20120509

REACTIONS (2)
  - Acute hepatic failure [Unknown]
  - Platelet count decreased [Unknown]
